FAERS Safety Report 5127473-3 (Version None)
Quarter: 2006Q4

REPORT INFORMATION
  Report Type: 
  Country: None (occurrence: None)
  Receive Date: 20061010
  Receipt Date: 20060926
  Transmission Date: 20070319
  Serious: Yes (Other)
  Sender: FDA-Public Use
  Company Number: 2006116888

PATIENT
  Sex: Male

DRUGS (2)
  1. AMLODIPINE [Suspect]
     Indication: HYPERTENSION
     Dosage: 10 MG (10 MG, FREQUENCY: DAILY)
  2. CYCLOSPORINE [Concomitant]

REACTIONS (5)
  - DIALYSIS [None]
  - KIDNEY TRANSPLANT REJECTION [None]
  - OEDEMA [None]
  - PAIN [None]
  - WEIGHT INCREASED [None]
